FAERS Safety Report 24276377 (Version 5)
Quarter: 2025Q2

REPORT INFORMATION
  Report Type: Spontaneous
  Country: DE (occurrence: DE)
  Receive Date: 20240903
  Receipt Date: 20250522
  Transmission Date: 20250716
  Serious: Yes (Other)
  Sender: AUROBINDO
  Company Number: DE-002147023-PHHY2019DE121451

PATIENT
  Age: 68 Year
  Sex: Female
  Weight: 88.8 kg

DRUGS (17)
  1. FULVESTRANT [Suspect]
     Active Substance: FULVESTRANT
     Indication: Breast cancer metastatic
     Dosage: 500 MG, QD (EVERY TWO WEEKS)
     Route: 030
     Dates: start: 20190807, end: 20190903
  2. FULVESTRANT [Suspect]
     Active Substance: FULVESTRANT
     Indication: Hormone receptor positive HER2 negative breast cancer
     Dosage: 500 MG, QD (EVERY FOUR WEEKS)
     Route: 030
     Dates: start: 20190903
  3. FULVESTRANT [Suspect]
     Active Substance: FULVESTRANT
     Dosage: 500 MG, QD (EVERY FOUR WEEKS)
     Route: 030
     Dates: start: 20190904
  4. LETROZOLE [Suspect]
     Active Substance: LETROZOLE
     Indication: Hormone receptor positive HER2 negative breast cancer
     Dosage: 2.5 MILLIGRAM, ONCE A DAY ((LAST DOSE RECEIVED ON 06 AUG 2019) 29-JAN2019 )
     Route: 048
     Dates: start: 20190129, end: 20190806
  5. KISQALI [Suspect]
     Active Substance: RIBOCICLIB SUCCINATE
     Indication: Breast cancer metastatic
     Dosage: 600 MG, QD (21 DAYS, 7 DAYS PAUSE)
     Route: 048
     Dates: start: 20190129
  6. KISQALI [Suspect]
     Active Substance: RIBOCICLIB SUCCINATE
     Indication: Hormone receptor positive HER2 negative breast cancer
     Dosage: 600 MG, QD (SCHEME 21 DAYS, 7 DAYS PAUSE)
     Route: 048
     Dates: start: 20190529, end: 20190806
  7. KISQALI [Suspect]
     Active Substance: RIBOCICLIB SUCCINATE
     Dosage: 600 MG, QD (SCHEME 21 DAYS, 7 DAYS PAUSE)
     Route: 048
     Dates: start: 20190807, end: 20191024
  8. KISQALI [Suspect]
     Active Substance: RIBOCICLIB SUCCINATE
     Dosage: 600 MG, QD (SCHEME 21 DAYS, 7 DAYS PAUSE)
     Route: 048
     Dates: start: 20191120, end: 20200423
  9. KISQALI [Suspect]
     Active Substance: RIBOCICLIB SUCCINATE
     Dosage: 400 MG, QD (SCHEME 21 DAYS, 7 DAYS PAUSE)
     Route: 048
     Dates: start: 20200424, end: 20200504
  10. KISQALI [Suspect]
     Active Substance: RIBOCICLIB SUCCINATE
     Dosage: 400 MG, QD (SCHEME 21 DAYS, 7 DAYS PAUSE)
     Route: 048
     Dates: start: 20200511, end: 20200803
  11. KISQALI [Suspect]
     Active Substance: RIBOCICLIB SUCCINATE
     Dosage: 200 MG, QD (SCHEME 21 DAYS, 7 DAYS PAUSE)
     Route: 048
     Dates: start: 20200804, end: 20211207
  12. KISQALI [Suspect]
     Active Substance: RIBOCICLIB SUCCINATE
     Dosage: 200 MILLIGRAM, ONCE A DAY (SCHEMA 21 DAYS INTAKE, 7 DAYS PAUSE) (STOP DATE: 07 DEC 2021)
     Route: 048
     Dates: start: 20211208, end: 20220105
  13. KISQALI [Suspect]
     Active Substance: RIBOCICLIB SUCCINATE
     Dosage: 200 MILLIGRAM, ONCE A DAY (SCHEMA 21 DAYS INTAKE, 7 DAYS PAUSE) (STOP DATE: 07 DEC 2021)
     Route: 048
     Dates: start: 20220106, end: 20240905
  14. KISQALI [Suspect]
     Active Substance: RIBOCICLIB SUCCINATE
     Dosage: 200 MILLIGRAM, ONCE A DAY (SCHEMA 21 DAYS INTAKE, 7 DAYS PAUSE) (STOP DATE: 07 DEC 2021)
     Route: 048
     Dates: start: 20190129, end: 20190521
  15. KISQALI [Suspect]
     Active Substance: RIBOCICLIB SUCCINATE
     Dosage: 200 MILLIGRAM, ONCE A DAY (SCHEMA 21 DAYS INTAKE, 7 DAYS PAUSE) (STOP DATE: 07 DEC 2021)
     Route: 048
     Dates: start: 20190529, end: 20190806
  16. KISQALI [Suspect]
     Active Substance: RIBOCICLIB SUCCINATE
     Dosage: 200 MILLIGRAM, ONCE A DAY (SCHEMA 21 DAYS INTAKE, 7 DAYS PAUSE) (STOP DATE: 07 DEC 2021)
     Route: 048
     Dates: start: 20190521
  17. LETROZOLE [Concomitant]
     Active Substance: LETROZOLE
     Indication: Breast cancer metastatic
     Dosage: 2.5 MILLIGRAM, ONCE A DAY
     Route: 048
     Dates: start: 20190129, end: 20190806

REACTIONS (24)
  - Sensory disturbance [Not Recovered/Not Resolved]
  - Arrhythmia [Unknown]
  - Blood pressure systolic increased [Recovered/Resolved]
  - Blood pressure diastolic decreased [Recovered/Resolved]
  - Blood potassium increased [Unknown]
  - Chest pain [Unknown]
  - Dyspnoea exertional [Recovered/Resolved]
  - Dizziness [Recovered/Resolved]
  - Dry mouth [Not Recovered/Not Resolved]
  - Electrocardiogram QT prolonged [Unknown]
  - Heart rate increased [Recovered/Resolved]
  - Leukopenia [Recovered/Resolved]
  - Myocardial infarction [Unknown]
  - Neutropenia [Recovered/Resolved]
  - Oedema peripheral [Unknown]
  - Pulmonary embolism [Unknown]
  - Pulmonary valve incompetence [Unknown]
  - Paraesthesia [Recovered/Resolved]
  - QRS axis abnormal [Unknown]
  - Supraventricular extrasystoles [Unknown]
  - Supraventricular tachycardia [Unknown]
  - Sinus bradycardia [Unknown]
  - Tricuspid valve incompetence [Unknown]
  - Thrombocytopenia [Recovered/Resolved]

NARRATIVE: CASE EVENT DATE: 20190130
